FAERS Safety Report 18557322 (Version 2)
Quarter: 2020Q4

REPORT INFORMATION
  Report Type: Report from Study
  Country: None (occurrence: US)
  Receive Date: 20201129
  Receipt Date: 20201215
  Transmission Date: 20210114
  Serious: Yes (Other)
  Sender: FDA-Public Use
  Company Number: US-ABBVIE-20K-163-3596422-00

PATIENT
  Sex: Male
  Weight: 142.1 kg

DRUGS (1)
  1. HUMIRA [Suspect]
     Active Substance: ADALIMUMAB
     Indication: ANKYLOSING SPONDYLITIS
     Route: 058
     Dates: end: 20201014

REACTIONS (3)
  - Procedural complication [Unknown]
  - Pain [Not Recovered/Not Resolved]
  - Back pain [Unknown]
